FAERS Safety Report 5225650-4 (Version None)
Quarter: 2007Q1

REPORT INFORMATION
  Report Type: 
  Country: None (occurrence: None)
  Receive Date: 20061201
  Receipt Date: 20061026
  Transmission Date: 20070707
  Serious: Yes (Hospitalization)
  Sender: FDA-Public Use
  Company Number: US200610004913

PATIENT
  Sex: Female

DRUGS (3)
  1. CYMBALTA [Suspect]
     Dosage: UNK, UNK, UNK
     Dates: start: 20061025, end: 20061026
  2. MORPHINE [Concomitant]
  3. CENESTIN [Concomitant]

REACTIONS (2)
  - ANAPHYLACTIC REACTION [None]
  - CONVULSION [None]
